FAERS Safety Report 13339226 (Version 1)
Quarter: 2017Q1

REPORT INFORMATION
  Report Type: Spontaneous
  Country: US (occurrence: US)
  Receive Date: 20170315
  Receipt Date: 20170315
  Transmission Date: 20170428
  Serious: No
  Sender: FDA-Public Use
  Company Number: US-TAKEDA-2017TUS004595

PATIENT
  Sex: Male
  Weight: 84.81 kg

DRUGS (3)
  1. ENTYVIO [Suspect]
     Active Substance: VEDOLIZUMAB
     Indication: CROHN^S DISEASE
     Dosage: 300 MG, UNK
     Route: 042
     Dates: start: 20141224
  2. PREDNISONE. [Concomitant]
     Active Substance: PREDNISONE
     Indication: CROHN^S DISEASE
     Dosage: 10 MG, QD
     Route: 048
  3. VENOFER [Concomitant]
     Active Substance: IRON SUCROSE
     Indication: BLOOD IRON DECREASED
     Dosage: UNK
     Route: 042
     Dates: start: 2015

REACTIONS (1)
  - Palpitations [Not Recovered/Not Resolved]
